FAERS Safety Report 7410109-6 (Version None)
Quarter: 2011Q2

REPORT INFORMATION
  Report Type: 
  Country: None (occurrence: None)
  Receive Date: 20110412
  Receipt Date: 20110404
  Transmission Date: 20111010
  Serious: Yes (Other)
  Sender: FDA-Public Use
  Company Number: GB-ROCHE-762617

PATIENT
  Sex: Female
  Weight: 86.5 kg

DRUGS (2)
  1. OXALIPLATIN [Suspect]
     Route: 042
     Dates: start: 20101111, end: 20110203
  2. CAPECITABINE [Suspect]
     Dosage: DOSE: 3000 UNITS
     Route: 048
     Dates: start: 20101111, end: 20110224

REACTIONS (1)
  - SWOLLEN TONGUE [None]
